FAERS Safety Report 7347085-0 (Version None)
Quarter: 2011Q1

REPORT INFORMATION
  Report Type: 
  Country: None (occurrence: None)
  Receive Date: 20110302
  Receipt Date: 20110224
  Transmission Date: 20110831
  Serious: Yes (Other)
  Sender: FDA-Public Use
  Company Number: 20109823

PATIENT
  Sex: Male

DRUGS (1)
  1. LIORESAL [Suspect]
     Indication: MUSCLE SPASTICITY
     Dosage: SEE B5 MCG, DAILY, INTRATHECAL
     Route: 037

REACTIONS (8)
  - DYSPNOEA [None]
  - HYPOXIA [None]
  - OVERDOSE [None]
  - RESPIRATORY DISORDER [None]
  - BRAIN INJURY [None]
  - NO THERAPEUTIC RESPONSE [None]
  - MUSCLE SPASMS [None]
  - HYPERTONIA [None]
